FAERS Safety Report 11049324 (Version 1)
Quarter: 2015Q2

REPORT INFORMATION
  Report Type: Spontaneous
  Country: TH (occurrence: TH)
  Receive Date: 20150420
  Receipt Date: 20150420
  Transmission Date: 20150821
  Serious: Yes (Other)
  Sender: FDA-Public Use
  Company Number: TH-MYLANLABS-2015M1012937

PATIENT

DRUGS (2)
  1. AMILORIDE [Suspect]
     Active Substance: AMILORIDE
     Indication: CONGENITAL NEPHROGENIC DIABETES INSIPIDUS
     Dosage: 0.2 MG/KG/DAY
     Route: 065
  2. HYDROCHLOROTHIAZIDE. [Suspect]
     Active Substance: HYDROCHLOROTHIAZIDE
     Indication: CONGENITAL NEPHROGENIC DIABETES INSIPIDUS
     Dosage: 2 MG/KG/DAY
     Route: 065

REACTIONS (2)
  - Hyponatraemia [Recovered/Resolved]
  - Dehydration [Recovered/Resolved]
